FAERS Safety Report 11163913 (Version 1)
Quarter: 2015Q2

REPORT INFORMATION
  Report Type: Spontaneous
  Country: IT (occurrence: IT)
  Receive Date: 20150604
  Receipt Date: 20150604
  Transmission Date: 20150821
  Serious: Yes (Life-Threatening)
  Sender: FDA-Public Use
  Company Number: IT-ROCHE-1588197

PATIENT
  Age: 63 Year
  Sex: Female
  Weight: 74 kg

DRUGS (3)
  1. MEDROL [Concomitant]
     Active Substance: METHYLPREDNISOLONE
     Route: 048
     Dates: start: 20120101, end: 20150316
  2. DIBASE [Concomitant]
     Active Substance: CHOLECALCIFEROL
     Indication: OSTEOPOROSIS
     Route: 048
  3. MABTHERA [Suspect]
     Active Substance: RITUXIMAB
     Indication: RHEUMATOID ARTHRITIS
     Dosage: 1 X 500 MG 50 ML AMPOULE
     Route: 042
     Dates: start: 20120601, end: 20141231

REACTIONS (3)
  - Pneumonia [Unknown]
  - Endocarditis bacterial [Unknown]
  - Respiratory distress [Unknown]

NARRATIVE: CASE EVENT DATE: 20150316
